FAERS Safety Report 14940264 (Version 2)
Quarter: 2018Q3

REPORT INFORMATION
  Report Type: Report from Study
  Country: CA (occurrence: CA)
  Receive Date: 20180525
  Receipt Date: 20180917
  Transmission Date: 20181010
  Serious: No
  Sender: FDA-Public Use
  Company Number: CA-SA-2018SA010928

PATIENT
  Age: 32 Year
  Sex: Female

DRUGS (6)
  1. ALEMTUZUMAB [Suspect]
     Active Substance: ALEMTUZUMAB
     Indication: RELAPSING-REMITTING MULTIPLE SCLEROSIS
     Dosage: 12 MG,QD
     Route: 041
     Dates: start: 20180108, end: 20180110
  2. PARACETAMOL [Concomitant]
     Active Substance: ACETAMINOPHEN
     Dosage: UNK UNK,PRN
     Route: 048
     Dates: start: 20180108
  3. RANITIDINE. [Concomitant]
     Active Substance: RANITIDINE
     Indication: PREMEDICATION
     Dosage: 150 MG,UNK
     Route: 048
     Dates: start: 20180108, end: 20180110
  4. METHYLPREDNISOLONE. [Concomitant]
     Active Substance: METHYLPREDNISOLONE
     Indication: PREMEDICATION
     Dosage: 1 G,UNK
     Route: 042
     Dates: start: 20180108, end: 20180110
  5. REACTINE [CETIRIZINE HYDROCHLORIDE] [Concomitant]
     Active Substance: CETIRIZINE HYDROCHLORIDE
     Indication: PREMEDICATION
     Dosage: 10 MG,UNK
     Route: 048
     Dates: start: 20180108, end: 20180110
  6. ACICLOVIR [Concomitant]
     Active Substance: ACYCLOVIR
     Indication: PREMEDICATION
     Dosage: 200 MG,BID
     Route: 048
     Dates: start: 20180108

REACTIONS (14)
  - Tachycardia [Recovered/Resolved]
  - Protein urine present [Recovered/Resolved]
  - Blood thyroid stimulating hormone increased [Unknown]
  - White blood cells urine positive [Not Recovered/Not Resolved]
  - Swelling [Recovered/Resolved]
  - Urine bilirubin increased [Recovered/Resolved]
  - Haemoglobin urine present [Unknown]
  - Urine leukocyte esterase positive [Unknown]
  - Lymphocyte count decreased [Recovered/Resolved]
  - Red cell distribution width increased [Recovered/Resolved]
  - Oedema [Recovered/Resolved]
  - Nuclear magnetic resonance imaging abnormal [Not Recovered/Not Resolved]
  - Blood urine present [Recovered/Resolved]
  - Urinary sediment present [Not Recovered/Not Resolved]

NARRATIVE: CASE EVENT DATE: 20180108
